FAERS Safety Report 24691567 (Version 11)
Quarter: 2025Q1

REPORT INFORMATION
  Report Type: Spontaneous
  Country: US (occurrence: US)
  Receive Date: 20241203
  Receipt Date: 20250217
  Transmission Date: 20250408
  Serious: Yes (Other)
  Sender: PFIZER
  Company Number: US-PFIZER INC-PV202400155435

PATIENT
  Age: 25 Year
  Sex: Female
  Weight: 49.887 kg

DRUGS (2)
  1. MARCAINE WITH EPINEPHRINE [Suspect]
     Active Substance: BUPIVACAINE HYDROCHLORIDE\EPINEPHRINE BITARTRATE
  2. MARCAINE WITH EPINEPHRINE [Suspect]
     Active Substance: BUPIVACAINE HYDROCHLORIDE\EPINEPHRINE BITARTRATE

REACTIONS (5)
  - Accidental exposure to product [Recovered/Resolved]
  - Exposure via eye contact [Recovered/Resolved]
  - Eye irritation [Unknown]
  - Exposure via mucosa [Unknown]
  - Hypoaesthesia oral [Unknown]

NARRATIVE: CASE EVENT DATE: 20241125
